FAERS Safety Report 8829787 (Version 3)
Quarter: 2012Q4

REPORT INFORMATION
  Report Type: 
  Country: US (occurrence: US)
  Receive Date: 20121008
  Receipt Date: 20121029
  Transmission Date: 20130627
  Serious: Yes (Death, Hospitalization, Other)
  Sender: FDA-Public Use
  Company Number: US-ALEXION-A201201870

PATIENT
  Age: 43 Year
  Sex: Male

DRUGS (8)
  1. SOLIRIS 300MG [Suspect]
     Indication: TRANSPLANT REJECTION
     Dosage: 1200 mg, single
     Route: 042
     Dates: start: 20120803, end: 20120803
  2. SOLIRIS 300MG [Suspect]
     Dosage: 900 mg, qw
     Route: 042
     Dates: start: 20120810, end: 20120828
  3. THYMOGLOBULINE [Suspect]
     Indication: TRANSPLANT REJECTION
  4. THYMOGLOBULINE [Suspect]
     Indication: IMMUNOSUPPRESSION
  5. BORTEZOMIB [Suspect]
     Indication: TRANSPLANT REJECTION
  6. BORTEZOMIB [Suspect]
     Indication: IMMUNOSUPPRESSION
  7. IMMUNOGLOBULIN [Suspect]
     Indication: TRANSPLANT REJECTION
     Route: 042
  8. IMMUNOGLOBULIN [Suspect]
     Indication: IMMUNOSUPPRESSION

REACTIONS (1)
  - Bronchopulmonary aspergillosis [Fatal]
